FAERS Safety Report 17360289 (Version 2)
Quarter: 2020Q1

REPORT INFORMATION
  Report Type: Spontaneous
  Country: JP (occurrence: JP)
  Receive Date: 20200203
  Receipt Date: 20200212
  Transmission Date: 20200409
  Serious: Yes (Hospitalization, Other)
  Sender: FDA-Public Use
  Company Number: JP-LUPIN PHARMACEUTICALS INC.-2020-00156

PATIENT
  Age: 39 Year
  Sex: Female

DRUGS (8)
  1. ZOLPIDEM [Suspect]
     Active Substance: ZOLPIDEM TARTRATE
     Dosage: 60-100 MG, UNK, (TABLET)
     Route: 065
  2. ZOLPIDEM [Suspect]
     Active Substance: ZOLPIDEM TARTRATE
     Dosage: 500 MILLIGRAM, QD (100 MG AT BEDTIME, 80 MG TWO OR THREE TIMES AT NIGHT, AND 60 MG THREE TIMES DURIN
     Route: 065
  3. MIANSERIN [Concomitant]
     Active Substance: MIANSERIN
     Indication: MAJOR DEPRESSION
     Dosage: 50 MILLIGRAM, UNK
     Route: 065
  4. ZOLPIDEM [Suspect]
     Active Substance: ZOLPIDEM TARTRATE
     Dosage: 10 MILLIGRAM, QD (TABLET)
     Route: 065
  5. DULOXETINE. [Concomitant]
     Active Substance: DULOXETINE
     Indication: MAJOR DEPRESSION
     Dosage: 40 MILLIGRAM, UNK
     Route: 065
  6. MIANSERIN [Concomitant]
     Active Substance: MIANSERIN
     Dosage: 60 MILLIGRAM, UNK
     Route: 065
  7. ZOLPIDEM [Suspect]
     Active Substance: ZOLPIDEM TARTRATE
     Indication: MAJOR DEPRESSION
     Dosage: 10 MILLIGRAM, QD (TABLET)
     Route: 065
  8. FLUNITRAZEPAM [Concomitant]
     Active Substance: FLUNITRAZEPAM
     Indication: MAJOR DEPRESSION
     Dosage: 2 MILLIGRAM, UNK
     Route: 065

REACTIONS (5)
  - Drug abuse [Unknown]
  - Tremor [Recovered/Resolved]
  - Hyperhidrosis [Recovered/Resolved]
  - Irritability [Recovered/Resolved]
  - Withdrawal syndrome [Recovered/Resolved]
